FAERS Safety Report 7917652-1 (Version None)
Quarter: 2011Q4

REPORT INFORMATION
  Report Type: 
  Country: None (occurrence: None)
  Receive Date: 20111114
  Receipt Date: 20111103
  Transmission Date: 20120403
  Serious: Yes (Other)
  Sender: FDA-Public Use
  Company Number: TPA2011A07324

PATIENT
  Age: 62 Year
  Sex: Female
  Weight: 90.7194 kg

DRUGS (2)
  1. ACTOS [Suspect]
     Indication: TYPE 2 DIABETES MELLITUS
     Dosage: 45 MG, 1 IN 1 D, PER ORAL
     Route: 048
     Dates: start: 20090101, end: 20110501
  2. METFORMIN HCL [Concomitant]

REACTIONS (9)
  - WEIGHT INCREASED [None]
  - SWELLING FACE [None]
  - CARDIAC FAILURE CONGESTIVE [None]
  - DECREASED APPETITE [None]
  - DYSPNOEA [None]
  - ALOPECIA [None]
  - OEDEMA PERIPHERAL [None]
  - MYALGIA [None]
  - ASTHENIA [None]
